FAERS Safety Report 6798141-7 (Version None)
Quarter: 2010Q2

REPORT INFORMATION
  Report Type: 
  Country: None (occurrence: None)
  Receive Date: 20100622
  Receipt Date: 20100608
  Transmission Date: 20101027
  Serious: Yes (Other)
  Sender: FDA-Public Use
  Company Number: 2010AP001130

PATIENT
  Age: 66 Year
  Sex: Female

DRUGS (14)
  1. OXYBUTYNIN CHLORIDE [Suspect]
     Indication: HYPERTONIC BLADDER
     Dosage: 5 MG;BID
  2. SALBUTAMOL [Concomitant]
  3. FLUTICASONE PROPIONATE [Concomitant]
  4. BENAZEPRIL HYDROCHLORIDE [Concomitant]
  5. HYDROCHLOROTHIAZIDE [Concomitant]
  6. ATORVASTATIN [Concomitant]
  7. GABAPENTIN [Concomitant]
  8. METFORMIN HYDROCHLORIDE [Concomitant]
  9. INSULIN GLARGINE [Concomitant]
  10. LANSOPRAZOLE [Concomitant]
  11. ACETAMINOPHEN [Concomitant]
  12. ACETYLSALICYLIC ACID [Concomitant]
  13. AMLODIPINE [Concomitant]
  14. HUMULIN 70/30 [Concomitant]

REACTIONS (8)
  - BLOOD POTASSIUM DECREASED [None]
  - BLOOD PRESSURE INCREASED [None]
  - COGNITIVE DISORDER [None]
  - FEELING ABNORMAL [None]
  - HAEMATOCRIT DECREASED [None]
  - HAEMOGLOBIN DECREASED [None]
  - MEMORY IMPAIRMENT [None]
  - TREATMENT NONCOMPLIANCE [None]
